FAERS Safety Report 15670230 (Version 1)
Quarter: 2018Q4

REPORT INFORMATION
  Report Type: Spontaneous
  Country: US (occurrence: US)
  Receive Date: 20181129
  Receipt Date: 20181129
  Transmission Date: 20190205
  Serious: No
  Sender: FDA-Public Use
  Company Number: US-SA-2018SA323737

PATIENT
  Sex: Female

DRUGS (1)
  1. KEVZARA [Suspect]
     Active Substance: SARILUMAB
     Dosage: 200MG/1.14ML, QOW
     Route: 058

REACTIONS (3)
  - Urticaria [Recovered/Resolved]
  - Injection site reaction [Recovered/Resolved]
  - Contusion [Recovered/Resolved]
